FAERS Safety Report 25203303 (Version 1)
Quarter: 2025Q2

REPORT INFORMATION
  Report Type: Spontaneous
  Country: US (occurrence: None)
  Receive Date: 20250415
  Receipt Date: 20250415
  Transmission Date: 20250717
  Serious: Yes (Death, Life-Threatening, Hospitalization)
  Sender: FDA-CTU
  Company Number: None

PATIENT
  Age: 59 Year
  Sex: Female
  Weight: 73.6 kg

DRUGS (1)
  1. CEFTRIAXONE [Suspect]
     Active Substance: CEFTRIAXONE
     Indication: Urinary tract infection
     Route: 040
     Dates: start: 20250323, end: 20250323

REACTIONS (27)
  - Groin infection [None]
  - Wound infection [None]
  - Cardiac arrest [None]
  - Multiple organ dysfunction syndrome [None]
  - Brain injury [None]
  - Peripheral artery bypass [None]
  - Secretion discharge [None]
  - Wound dehiscence [None]
  - Nausea [None]
  - Vomiting [None]
  - Dysuria [None]
  - Pneumonia [None]
  - Cellulitis [None]
  - Pulseless electrical activity [None]
  - Ventricular fibrillation [None]
  - Ventricular tachycardia [None]
  - Anaphylactic reaction [None]
  - Blood pressure increased [None]
  - Anaemia [None]
  - White blood cell count increased [None]
  - Peripheral artery occlusion [None]
  - Livedo reticularis [None]
  - Septic shock [None]
  - Lactic acidosis [None]
  - Myocardial infarction [None]
  - Pulmonary embolism [None]
  - Cerebrovascular accident [None]

NARRATIVE: CASE EVENT DATE: 20250323
